FAERS Safety Report 8565328 (Version 2)
Quarter: 2013Q3

REPORT INFORMATION
  Report Type: Spontaneous
  Country: US (occurrence: US)
  Receive Date: 20120516
  Receipt Date: 20130802
  Transmission Date: 20140515
  Serious: Yes (Other)
  Sender: FDA-Public Use
  Company Number: US-ROCHE-793671

PATIENT
  Sex: Female
  Weight: 77.18 kg

DRUGS (2)
  1. ACCUTANE [Suspect]
     Indication: ACNE
     Route: 065
     Dates: start: 1998, end: 1999
  2. ACCUTANE [Suspect]
     Route: 065

REACTIONS (2)
  - Inflammatory bowel disease [Unknown]
  - Irritable bowel syndrome [Unknown]
